FAERS Safety Report 18137813 (Version 1)
Quarter: 2020Q3

REPORT INFORMATION
  Report Type: Spontaneous
  Country: CA (occurrence: CA)
  Receive Date: 20200812
  Receipt Date: 20200812
  Transmission Date: 20201103
  Serious: Yes (Hospitalization)
  Sender: FDA-Public Use
  Company Number: CA-TEVA-2020-CA-1812856

PATIENT
  Age: 76 Year
  Sex: Female
  Weight: 80 kg

DRUGS (13)
  1. FLOMAX [Concomitant]
     Active Substance: TAMSULOSIN HYDROCHLORIDE
  2. VITAMIN D [Concomitant]
     Active Substance: VITAMIN D NOS
  3. IRON [Concomitant]
     Active Substance: IRON
  4. BACLOFEN. [Concomitant]
     Active Substance: BACLOFEN
  5. IMOVANE [Concomitant]
     Active Substance: ZOPICLONE
  6. FOLIC ACID. [Concomitant]
     Active Substance: FOLIC ACID
  7. ASA [Concomitant]
     Active Substance: ASPIRIN
  8. LEVOTHYROXINE. [Concomitant]
     Active Substance: LEVOTHYROXINE
  9. MICRONOR TABLETS 28?DAY [Concomitant]
  10. METHOTREXATE. [Concomitant]
     Active Substance: METHOTREXATE
  11. PLAQUENIL [Concomitant]
     Active Substance: HYDROXYCHLOROQUINE SULFATE
  12. RISEDRONATE SODIUM. [Suspect]
     Active Substance: RISEDRONATE SODIUM
     Indication: OSTEOPOROSIS
     Route: 048
  13. OXYCODONE [Concomitant]
     Active Substance: OXYCODONE

REACTIONS (2)
  - Surgery [Unknown]
  - Hip fracture [Unknown]
